FAERS Safety Report 12798728 (Version 8)
Quarter: 2017Q1

REPORT INFORMATION
  Report Type: Report from Study
  Country: AU (occurrence: AU)
  Receive Date: 20160930
  Receipt Date: 20170113
  Transmission Date: 20170428
  Serious: Yes (Hospitalization, Other)
  Sender: FDA-Public Use
  Company Number: PHHY2016AU132298

PATIENT
  Age: 32 Year
  Sex: Female

DRUGS (6)
  1. SANDOSTATIN LAR DEPOT [Suspect]
     Active Substance: OCTREOTIDE ACETATE
     Indication: ACROMEGALY
     Dosage: 20 MG, UNK
     Route: 030
  2. OCTREOTIDE. [Suspect]
     Active Substance: OCTREOTIDE
     Indication: ACROMEGALY
     Route: 065
  3. SANDOSTATIN [Suspect]
     Active Substance: OCTREOTIDE ACETATE
     Indication: ACROMEGALY
     Dosage: 0.05 MG/ML, 2-3 TIMES PER DAY
     Route: 065
     Dates: start: 20160916
  4. SANDOSTATIN [Suspect]
     Active Substance: OCTREOTIDE ACETATE
     Dosage: 50 UG/ML, UNK
     Route: 065
  5. SANDOSTATIN [Suspect]
     Active Substance: OCTREOTIDE ACETATE
     Dosage: 0.05 MG/ML, TID
     Route: 065
  6. DOSTINEX [Concomitant]
     Active Substance: CABERGOLINE
     Indication: PRODUCT USED FOR UNKNOWN INDICATION
     Dosage: UNK UNK, QW (ONCE WEEKLY)
     Route: 065

REACTIONS (17)
  - Pneumonia [Recovered/Resolved]
  - Retinopathy [Not Recovered/Not Resolved]
  - Vision blurred [Not Recovered/Not Resolved]
  - Headache [Recovered/Resolved]
  - Product package associated injury [Unknown]
  - Emotional distress [Unknown]
  - Visual impairment [Unknown]
  - Malaise [Unknown]
  - Visual acuity reduced [Unknown]
  - Headache [Unknown]
  - Balance disorder [Recovered/Resolved]
  - Retinal haemorrhage [Not Recovered/Not Resolved]
  - Migraine [Unknown]
  - Dyschromatopsia [Unknown]
  - Infection [Recovered/Resolved]
  - Product packaging issue [Unknown]
  - Vitreous floaters [Not Recovered/Not Resolved]

NARRATIVE: CASE EVENT DATE: 20160923
